FAERS Safety Report 6692657-X (Version None)
Quarter: 2010Q2

REPORT INFORMATION
  Report Type: 
  Country: None (occurrence: None)
  Receive Date: 20100422
  Receipt Date: 20100419
  Transmission Date: 20101027
  Serious: Yes (Other)
  Sender: FDA-Public Use
  Company Number: US-PFIZER INC-2010049696

PATIENT
  Sex: Female
  Weight: 55.782 kg

DRUGS (6)
  1. TOVIAZ [Suspect]
     Dosage: 1 DOSE
     Dates: start: 20100418
  2. DETROL LA [Suspect]
     Indication: HYPERTONIC BLADDER
     Dosage: 4 MG, UNK
     Route: 048
  3. DARIFENACIN [Suspect]
     Dosage: 1 PILL
  4. LIPITOR [Concomitant]
     Dosage: UNK
  5. ACETYLSALICYLIC ACID [Concomitant]
     Dosage: 81 MG, UNK
  6. CALCIUM [Concomitant]
     Dosage: UNK

REACTIONS (4)
  - BLADDER DISORDER [None]
  - DRUG PHYSIOLOGIC INCOMPATIBILITY [None]
  - DYSURIA [None]
  - VAGINAL DISORDER [None]
